FAERS Safety Report 7022422-5 (Version None)
Quarter: 2010Q3

REPORT INFORMATION
  Report Type: 
  Country: None (occurrence: None)
  Receive Date: 20100916
  Receipt Date: 20100614
  Transmission Date: 20110219
  Serious: No
  Sender: FDA-Public Use
  Company Number: DKLU1062959

PATIENT
  Age: 10 Year
  Sex: Female

DRUGS (2)
  1. SABRIL [Suspect]
     Indication: EPILEPSY
     Dosage: 500 MG MILLIGRAM(S), AM, ORAL ; 500 MG MILLIGRAM(S), EVENING, ORAL
     Route: 048
     Dates: start: 20100401
  2. SABRIL [Suspect]
     Indication: EPILEPSY
     Dosage: 500 MG MILLIGRAM(S), AM, ORAL ; 500 MG MILLIGRAM(S), EVENING, ORAL
     Route: 048
     Dates: start: 20100401

REACTIONS (1)
  - WEIGHT INCREASED [None]
